FAERS Safety Report 18080913 (Version 1)
Quarter: 2020Q3

REPORT INFORMATION
  Report Type: Spontaneous
  Country: CN (occurrence: CN)
  Receive Date: 20200728
  Receipt Date: 20200728
  Transmission Date: 20201103
  Serious: Yes (Hospitalization)
  Sender: FDA-Public Use
  Company Number: CN-BAYER-2020-152323

PATIENT
  Age: 52 Year
  Sex: Female
  Weight: 62 kg

DRUGS (1)
  1. GLUCOBAY [Suspect]
     Active Substance: ACARBOSE
     Indication: TYPE 2 DIABETES MELLITUS
     Dosage: 50 MG, TID
     Route: 048
     Dates: start: 20200627, end: 20200628

REACTIONS (1)
  - Abdominal distension [Recovering/Resolving]

NARRATIVE: CASE EVENT DATE: 20200628
